FAERS Safety Report 5265330-2 (Version None)
Quarter: 2007Q1

REPORT INFORMATION
  Report Type: 
  Country: None (occurrence: None)
  Receive Date: 20061214
  Receipt Date: 20040525
  Transmission Date: 20070707
  Serious: Yes (Other)
  Sender: FDA-Public Use
  Company Number: 2004UW10938

PATIENT
  Age: 6 Month
  Sex: Male

DRUGS (3)
  1. PULMICORT RESPULES [Suspect]
     Indication: ASTHMA
     Dosage: 0.25 MG DAILY IH
     Route: 055
  2. PULMICORT RESPULES [Suspect]
     Indication: ASTHMA
     Dosage: 0.5 MG DAILY IH
     Route: 055
  3. ANTIBIOTIC [Concomitant]

REACTIONS (3)
  - FATIGUE [None]
  - MEDICATION ERROR [None]
  - SEDATION [None]
